FAERS Safety Report 22043100 (Version 1)
Quarter: 2023Q1

REPORT INFORMATION
  Report Type: Spontaneous
  Country: US (occurrence: US)
  Receive Date: 20230228
  Receipt Date: 20230228
  Transmission Date: 20230418
  Serious: No
  Sender: FDA-Public Use
  Company Number: US-BRISTOL-MYERS SQUIBB COMPANY-2023-028837

PATIENT
  Age: 71 Year
  Sex: Female

DRUGS (1)
  1. LENALIDOMIDE [Suspect]
     Active Substance: LENALIDOMIDE
     Indication: Plasma cell myeloma
     Dosage: TAKE 1 CAPSULE BY MOUTH WHOLE WITH A GLASS OF WATER EVERY MORNING FOR 14 DAYS FOLLOWED BY 7 DAYS OFF
     Route: 048

REACTIONS (4)
  - Back pain [Unknown]
  - Feeling abnormal [Unknown]
  - Dry skin [Unknown]
  - Off label use [Unknown]
